FAERS Safety Report 4309505-5 (Version None)
Quarter: 2004Q1

REPORT INFORMATION
  Report Type: 
  Country: None (occurrence: None)
  Receive Date: 20040301
  Receipt Date: 20040216
  Transmission Date: 20041129
  Serious: No
  Sender: FDA-Public Use
  Company Number: 200310861

PATIENT
  Age: 67 Year
  Sex: Female

DRUGS (3)
  1. MIROL OPHTHALMIC SOLUTION 0.5% [Suspect]
     Indication: OPEN ANGLE GLAUCOMA
     Dosage: 2 DROP QD EYE
     Dates: start: 20030709, end: 20030722
  2. XALATAN [Concomitant]
  3. DETANTOL [Concomitant]

REACTIONS (3)
  - CONDITION AGGRAVATED [None]
  - FATIGUE [None]
  - VENTRICULAR EXTRASYSTOLES [None]
